FAERS Safety Report 23221417 (Version 1)
Quarter: 2023Q4

REPORT INFORMATION
  Report Type: Report from Study
  Country: FR (occurrence: None)
  Receive Date: 20231123
  Receipt Date: 20231123
  Transmission Date: 20240109
  Serious: Yes (Hospitalization)
  Sender: FDA-Public Use
  Company Number: FR-ROCHE-3456963

PATIENT
  Age: 75 Year
  Sex: Female

DRUGS (2)
  1. MOSUNETUZUMAB [Suspect]
     Active Substance: MOSUNETUZUMAB
     Indication: Marginal zone lymphoma
     Dosage: DATE OF LAST DOSE PRIOR TO SAE: 07/NOV/2023
     Route: 065
     Dates: start: 20230919
  2. LENALIDOMIDE [Suspect]
     Active Substance: LENALIDOMIDE
     Indication: Marginal zone lymphoma
     Dosage: DATE OF LAST DOSE PRIOR TO SAE: 10/NOV/2023
     Route: 065
     Dates: start: 20230919

REACTIONS (2)
  - Discomfort [Not Recovered/Not Resolved]
  - Injection site reaction [Not Recovered/Not Resolved]

NARRATIVE: CASE EVENT DATE: 20231110
